FAERS Safety Report 21265925 (Version 1)
Quarter: 2022Q3

REPORT INFORMATION
  Report Type: Spontaneous
  Country: US (occurrence: US)
  Receive Date: 20220829
  Receipt Date: 20220829
  Transmission Date: 20221026
  Serious: Yes (Hospitalization, Other)
  Sender: FDA-Public Use
  Company Number: US-FreseniusKabi-FK202211723

PATIENT
  Age: 32 Year
  Sex: Female

DRUGS (11)
  1. OXYTOCIN [Suspect]
     Active Substance: OXYTOCIN
     Indication: Labour induction
     Dosage: STARTED AT .24 U/H AND RANGING FROM 0.04 U/H TO 1.2 U/H.
     Route: 065
  2. LIDOCAINE [Suspect]
     Active Substance: LIDOCAINE
     Indication: Product used for unknown indication
     Dosage: EPIDURAL CATHETER WAS BOLUSED INCREMENTALLY WITH A SOLUTION COMPRISING OF LIDOCAINE 2% WITH 1 ML OF
     Route: 008
  3. BUPIVACAINE [Suspect]
     Active Substance: BUPIVACAINE
     Indication: Analgesic therapy
     Dosage: 0.125% BUPIVACAINE WITH FENTANYL 2 MCG/ML ADMINISTERED AT 6 ML/H.
     Route: 008
  4. MAGNESIUM SULFATE [Suspect]
     Active Substance: MAGNESIUM SULFATE
     Indication: Pre-eclampsia
     Dosage: 1.5 TO 2.0 G/H
     Route: 040
  5. MAGNESIUM SULFATE [Suspect]
     Active Substance: MAGNESIUM SULFATE
     Dosage: RANGING BETWEEN 1.5 TO 2.0 G/H
  6. FENTANYL [Suspect]
     Active Substance: FENTANYL
     Indication: Analgesic therapy
     Dosage: 0.125% BUPIVACAINE WITH FENTANYL 2 MCG/ML ADMINISTERED AT 6 ML/H.
     Route: 008
  7. FUROSEMIDE [Suspect]
     Active Substance: FUROSEMIDE
     Indication: Pulmonary oedema
     Route: 042
  8. LACTATED RINGERS SOLUTION [Suspect]
     Active Substance: CALCIUM CHLORIDE\POTASSIUM CHLORIDE\SODIUM CHLORIDE\SODIUM LACTATE
     Indication: Product used for unknown indication
     Dosage: 3 FLUID BOLUSES (500 ML EACH)
  9. SODIUM BICARBONATE [Concomitant]
     Active Substance: SODIUM BICARBONATE
     Indication: Product used for unknown indication
     Dosage: LIDOCAINE 2% WITH 1ML OF 8.4% SODIUM BICARBONATE FOR A FINAL VOLUME OF 20ML
  10. MISOPROSTOL [Concomitant]
     Active Substance: MISOPROSTOL
     Indication: Labour induction
     Route: 060
  11. LABETALOL [Concomitant]
     Active Substance: LABETALOL\LABETALOL HYDROCHLORIDE
     Indication: Product used for unknown indication
     Route: 042

REACTIONS (3)
  - Acute pulmonary oedema [Unknown]
  - Acute respiratory failure [Unknown]
  - Exposure during pregnancy [Unknown]
